FAERS Safety Report 9359652 (Version 1)
Quarter: 2013Q2

REPORT INFORMATION
  Report Type: Spontaneous
  Country: US (occurrence: US)
  Receive Date: 20130620
  Receipt Date: 20130620
  Transmission Date: 20140414
  Serious: No
  Sender: FDA-Public Use
  Company Number: US-US-EMD SERONO, INC.-7078543

PATIENT
  Sex: Female

DRUGS (1)
  1. REBIF [Suspect]
     Indication: PRODUCT USED FOR UNKNOWN INDICATION
     Route: 058
     Dates: start: 20100411, end: 20110819

REACTIONS (4)
  - Breast pain [Unknown]
  - Pollakiuria [Unknown]
  - Normal newborn [Recovered/Resolved]
  - Maternal exposure timing unspecified [Unknown]
